FAERS Safety Report 7338935-2 (Version None)
Quarter: 2011Q1

REPORT INFORMATION
  Report Type: 
  Country: None (occurrence: None)
  Receive Date: 20110308
  Receipt Date: 20110303
  Transmission Date: 20110831
  Serious: Yes (Other)
  Sender: FDA-Public Use
  Company Number: US-PFIZER INC-2011047714

PATIENT
  Age: 4 Year
  Sex: Male

DRUGS (1)
  1. ROBITUSSIN CHILDRENS COUGH AND COLD CF [Suspect]
     Dosage: UNK
     Dates: start: 20110301

REACTIONS (1)
  - URTICARIA [None]
